FAERS Safety Report 14043527 (Version 3)
Quarter: 2018Q1

REPORT INFORMATION
  Report Type: Spontaneous
  Country: CZ (occurrence: CZ)
  Receive Date: 20171004
  Receipt Date: 20180228
  Transmission Date: 20180508
  Serious: Yes (Hospitalization)
  Sender: FDA-Public Use
  Company Number: CZ-SA-2017SA182026

PATIENT
  Age: 28 Year
  Sex: Female

DRUGS (1)
  1. LEMTRADA [Suspect]
     Active Substance: ALEMTUZUMAB
     Indication: MULTIPLE SCLEROSIS
     Route: 041
     Dates: start: 20170925

REACTIONS (28)
  - Circulatory collapse [Unknown]
  - Neutrophil percentage increased [Not Recovered/Not Resolved]
  - Hypercoagulation [Unknown]
  - Dyspnoea [Unknown]
  - Mean cell volume decreased [Not Recovered/Not Resolved]
  - Mean platelet volume increased [Not Recovered/Not Resolved]
  - Thrombin time [Unknown]
  - White blood cell count increased [Not Recovered/Not Resolved]
  - Neutrophil count increased [Not Recovered/Not Resolved]
  - C-reactive protein increased [Unknown]
  - Fibrin increased [Unknown]
  - Blood fibrinogen decreased [Recovered/Resolved]
  - Blood potassium decreased [Recovered/Resolved]
  - Blood osmolarity increased [Recovered/Resolved]
  - Mean cell haemoglobin decreased [Not Recovered/Not Resolved]
  - Lymphocyte percentage decreased [Not Recovered/Not Resolved]
  - Granulocyte count increased [Unknown]
  - Lymphocyte count decreased [Not Recovered/Not Resolved]
  - Hypotension [Recovering/Resolving]
  - Fibrin D dimer increased [Not Recovered/Not Resolved]
  - Blood glucose increased [Not Recovered/Not Resolved]
  - Prothrombin time ratio increased [Unknown]
  - Monocyte percentage decreased [Not Recovered/Not Resolved]
  - Platelet count decreased [Not Recovered/Not Resolved]
  - Haemoglobin decreased [Unknown]
  - Platelet-large cell ratio increased [Not Recovered/Not Resolved]
  - Sinus tachycardia [Recovering/Resolving]
  - Monocyte count decreased [Recovered/Resolved]

NARRATIVE: CASE EVENT DATE: 20170925
